FAERS Safety Report 8485843 (Version 8)
Quarter: 2012Q4

REPORT INFORMATION
  Report Type: 
  Country: US (occurrence: US)
  Receive Date: 20120330
  Receipt Date: 20120906
  Transmission Date: 20130627
  Serious: Yes (Hospitalization, Disabling, Other)
  Sender: FDA-Public Use
  Company Number: US-009507513-1203USA03377

PATIENT

DRUGS (5)
  1. FOSAMAX [Suspect]
     Indication: OSTEOPOROSIS
     Dosage: 70 mg, UNK
     Route: 048
     Dates: start: 1995, end: 2011
  2. FOSAMAX [Suspect]
     Indication: OSTEOPENIA
     Dosage: 10 mg, UNK
     Route: 048
     Dates: start: 19980917
  3. FOSAMAX [Suspect]
     Dosage: 70 mg, UNK
     Route: 048
     Dates: start: 2003, end: 2005
  4. FOSAMAX [Suspect]
     Dosage: 70 mg, UNK
     Route: 048
     Dates: start: 200603, end: 2008
  5. FOSAMAX [Suspect]
     Indication: OSTEOPOROSIS
     Dosage: 70 mg, UNK
     Route: 048

REACTIONS (29)
  - Femur fracture [Unknown]
  - Femur fracture [Not Recovered/Not Resolved]
  - Anaemia [Unknown]
  - Blood disorder [Unknown]
  - Humerus fracture [Unknown]
  - Femur fracture [Not Recovered/Not Resolved]
  - Gastrointestinal disorder [Unknown]
  - Ovarian disorder [Unknown]
  - Wrist fracture [Unknown]
  - Radius fracture [Unknown]
  - Nephrolithiasis [Unknown]
  - Multiple fractures [Not Recovered/Not Resolved]
  - Low turnover osteopathy [Not Recovered/Not Resolved]
  - Osteoporosis [Not Recovered/Not Resolved]
  - Tooth disorder [Unknown]
  - Oral disorder [Unknown]
  - Hypertension [Unknown]
  - Stress fracture [Unknown]
  - Body height decreased [Unknown]
  - Macular degeneration [Unknown]
  - Vitreous floaters [Unknown]
  - Herpes zoster [Unknown]
  - Skin ulcer [Unknown]
  - Hypothyroidism [Not Recovered/Not Resolved]
  - Osteoarthritis [Unknown]
  - Arthropathy [Unknown]
  - Intervertebral disc space narrowing [Unknown]
  - Spinal osteoarthritis [Unknown]
  - Muscle strain [Unknown]
